FAERS Safety Report 8398555-8 (Version None)
Quarter: 2012Q2

REPORT INFORMATION
  Report Type: 
  Country: None (occurrence: None)
  Receive Date: 20120531
  Receipt Date: 20120525
  Transmission Date: 20120825
  Serious: Yes (Other)
  Sender: FDA-Public Use
  Company Number: US-BAYER-2012-052533

PATIENT
  Age: 48 Year
  Sex: Female

DRUGS (3)
  1. YAZ [Suspect]
     Dosage: UNK
     Dates: start: 20080303, end: 20101019
  2. YAZ [Suspect]
     Dosage: UNK
     Dates: start: 20110310, end: 20110910
  3. DROSPIRENONE AND ETHINYL ESTRADIOL [Suspect]
     Dosage: UNK
     Dates: start: 20101019, end: 20110310

REACTIONS (6)
  - DEPRESSION [None]
  - NERVOUSNESS [None]
  - EMOTIONAL DISTRESS [None]
  - INJURY [None]
  - FEAR OF DEATH [None]
  - CHOLECYSTECTOMY [None]
